FAERS Safety Report 19435848 (Version 1)
Quarter: 2021Q2

REPORT INFORMATION
  Report Type: Spontaneous
  Country: US (occurrence: US)
  Receive Date: 20210618
  Receipt Date: 20210618
  Transmission Date: 20210717
  Serious: No
  Sender: FDA-Public Use
  Company Number: US-CLARUS THERAPEUTICS, INC.-2021-JATENZO-000029

PATIENT

DRUGS (1)
  1. JATENZO [Suspect]
     Active Substance: TESTOSTERONE UNDECANOATE
     Indication: PROSTATE CANCER
     Dosage: 237 MILLIGRAM, BID
     Dates: start: 202012, end: 202101

REACTIONS (2)
  - Nightmare [Recovered/Resolved]
  - Off label use [Unknown]
